FAERS Safety Report 15413732 (Version 1)
Quarter: 2018Q3

REPORT INFORMATION
  Report Type: Report from Study
  Country: US (occurrence: US)
  Receive Date: 20180921
  Receipt Date: 20180921
  Transmission Date: 20181010
  Serious: Yes (Hospitalization)
  Sender: FDA-Public Use
  Company Number: US-VIFOR (INTERNATIONAL) INC.-VIT-2018-07489

PATIENT
  Age: 72 Year
  Sex: Female

DRUGS (1)
  1. VELTASSA [Suspect]
     Active Substance: PATIROMER
     Indication: HYPERKALAEMIA
     Route: 048
     Dates: start: 20170414

REACTIONS (2)
  - Drug dose omission [Not Recovered/Not Resolved]
  - Oesophageal disorder [Not Recovered/Not Resolved]

NARRATIVE: CASE EVENT DATE: 201806
